FAERS Safety Report 24228206 (Version 1)
Quarter: 2024Q3

REPORT INFORMATION
  Report Type: Report from Study
  Country: CN (occurrence: CN)
  Receive Date: 20240820
  Receipt Date: 20240820
  Transmission Date: 20241016
  Serious: Yes (Other)
  Sender: RANBAXY
  Company Number: CN-SUN PHARMACEUTICAL INDUSTRIES LTD-2024R1-463270

PATIENT
  Sex: Female

DRUGS (6)
  1. METHYLPREDNISOLONE [Suspect]
     Active Substance: METHYLPREDNISOLONE
     Indication: Thrombotic microangiopathy
     Dosage: 240 MILLIGRAM, DAILY
     Route: 042
  2. METHYLPREDNISOLONE [Suspect]
     Active Substance: METHYLPREDNISOLONE
     Indication: Tubulointerstitial nephritis
  3. METHYLPREDNISOLONE [Suspect]
     Active Substance: METHYLPREDNISOLONE
     Indication: IgA nephropathy
  4. PREDNISONE [Suspect]
     Active Substance: PREDNISONE
     Indication: Thrombotic microangiopathy
     Dosage: 60 MILLIGRAM, DAILY
     Route: 065
  5. PREDNISONE [Suspect]
     Active Substance: PREDNISONE
     Indication: Tubulointerstitial nephritis
  6. PREDNISONE [Suspect]
     Active Substance: PREDNISONE
     Indication: IgA nephropathy

REACTIONS (1)
  - Therapy partial responder [Unknown]
